FAERS Safety Report 5752503-5 (Version None)
Quarter: 2008Q2

REPORT INFORMATION
  Report Type: 
  Country: None (occurrence: None)
  Receive Date: 20080529
  Receipt Date: 20080415
  Transmission Date: 20081010
  Serious: No
  Sender: FDA-Public Use
  Company Number: US-BAYER-200714136BCC

PATIENT
  Age: 17 Year
  Sex: Male
  Weight: 75 kg

DRUGS (4)
  1. ALEVE (CAPLET) [Suspect]
     Indication: PYREXIA
     Dosage: TOTAL DAILY DOSE: 220 MG  UNIT DOSE: 220 MG
     Route: 048
     Dates: start: 20071210, end: 20071210
  2. SEPTRA [Concomitant]
     Indication: ACNE
  3. TYLENOL [Concomitant]
  4. AUGMENTIN '125' [Concomitant]

REACTIONS (2)
  - BREATH SOUNDS ABNORMAL [None]
  - COUGH [None]
